FAERS Safety Report 20587344 (Version 1)
Quarter: 2022Q1

REPORT INFORMATION
  Report Type: Spontaneous
  Country: US (occurrence: US)
  Receive Date: 20220314
  Receipt Date: 20220314
  Transmission Date: 20220423
  Serious: Yes (Hospitalization, Other)
  Sender: FDA-Public Use
  Company Number: US-RISINGPHARMA-US-2022RISLIT00242

PATIENT
  Age: 76 Year
  Sex: Male

DRUGS (1)
  1. ACETAMINOPHEN [Suspect]
     Active Substance: ACETAMINOPHEN
     Indication: Product used for unknown indication
     Dosage: 200 APAP PILLS
     Route: 048

REACTIONS (6)
  - Encephalopathy [Recovered/Resolved]
  - Tachypnoea [Recovered/Resolved]
  - Metabolic acidosis [Recovered/Resolved]
  - Toxicity to various agents [Recovered/Resolved]
  - Hypotension [Recovered/Resolved]
  - Overdose [Recovered/Resolved]
